FAERS Safety Report 24022055 (Version 3)
Quarter: 2024Q2

REPORT INFORMATION
  Report Type: Spontaneous
  Country: US (occurrence: US)
  Receive Date: 20240627
  Receipt Date: 20240627
  Transmission Date: 20240716
  Serious: No
  Sender: FDA-Public Use
  Company Number: US-ROCHE-3512499

PATIENT
  Age: 61 Year
  Sex: Female

DRUGS (6)
  1. VABYSMO [Suspect]
     Active Substance: FARICIMAB\FARICIMAB-SVOA
     Indication: Product used for unknown indication
     Dosage: OD-01/JUN/2023, 08/18/2023, 09/22/2023,11/17/2023, AND 01/12/2024?OS- 02/JUN/2023, 06/02/2023, 08/25
     Route: 050
     Dates: start: 20230601
  2. AVASTIN [Suspect]
     Active Substance: BEVACIZUMAB
     Indication: Product used for unknown indication
     Route: 050
     Dates: start: 20230504
  3. GLIPIZIDE [Concomitant]
     Active Substance: GLIPIZIDE
  4. COLCHICINE [Concomitant]
     Active Substance: COLCHICINE
  5. LISINOPRIL [Concomitant]
     Active Substance: LISINOPRIL
  6. TRULICITY [Concomitant]
     Active Substance: DULAGLUTIDE

REACTIONS (11)
  - Ocular vasculitis [Unknown]
  - Keratic precipitates [Unknown]
  - Vision blurred [Unknown]
  - Eye pain [Unknown]
  - Ocular hyperaemia [Unknown]
  - Intraocular pressure increased [Unknown]
  - Anterior chamber cell [Unknown]
  - Anterior chamber flare [Unknown]
  - Iridocyclitis [Unknown]
  - Off label use [Unknown]
  - Off label use [Unknown]

NARRATIVE: CASE EVENT DATE: 20230504
